FAERS Safety Report 8165733-2 (Version None)
Quarter: 2012Q1

REPORT INFORMATION
  Report Type: 
  Country: None (occurrence: None)
  Receive Date: 20120227
  Receipt Date: 20110228
  Transmission Date: 20120608
  Serious: No
  Sender: FDA-Public Use
  Company Number: US-MYLANLABS-2011S1000679

PATIENT
  Age: 18 Year
  Sex: Female
  Weight: 69.85 kg

DRUGS (2)
  1. AMNESTEEM [Suspect]
     Indication: ACNE
     Route: 048
  2. YAZ /01502501/ [Concomitant]

REACTIONS (1)
  - NASAL CONGESTION [None]
